FAERS Safety Report 19001960 (Version 1)
Quarter: 2021Q1

REPORT INFORMATION
  Report Type: Spontaneous
  Country: US (occurrence: US)
  Receive Date: 20210311
  Receipt Date: 20210311
  Transmission Date: 20210420
  Serious: Yes (Death)
  Sender: FDA-Public Use
  Company Number: None

PATIENT
  Age: 71 Year
  Sex: Male

DRUGS (1)
  1. TACROLIMUS CAP 1MG [Suspect]
     Active Substance: TACROLIMUS
     Dosage: 4MG/3MG BID ORAL
     Route: 048
     Dates: start: 201506, end: 202008

REACTIONS (1)
  - Death [None]

NARRATIVE: CASE EVENT DATE: 20200813
